FAERS Safety Report 10060359 (Version 2)
Quarter: 2014Q2

REPORT INFORMATION
  Report Type: Report from Study
  Country: US (occurrence: US)
  Receive Date: 20140404
  Receipt Date: 20140415
  Transmission Date: 20141212
  Serious: Yes (Hospitalization)
  Sender: FDA-Public Use
  Company Number: US-ACTELION-A-US2014-96974

PATIENT
  Age: 62 Year
  Sex: Female

DRUGS (2)
  1. MACITENTAN [Suspect]
     Indication: PULMONARY ARTERIAL HYPERTENSION
     Dosage: 10 MG, QD
     Route: 048
     Dates: start: 20131226
  2. ADCIRCA [Concomitant]

REACTIONS (2)
  - Foot operation [Not Recovered/Not Resolved]
  - Staphylococcal infection [Not Recovered/Not Resolved]
